FAERS Safety Report 8176966-3 (Version None)
Quarter: 2012Q1

REPORT INFORMATION
  Report Type: 
  Country: None (occurrence: None)
  Receive Date: 20120301
  Receipt Date: 20120228
  Transmission Date: 20120608
  Serious: Yes (Other)
  Sender: FDA-Public Use
  Company Number: US-PFIZER INC-2012052940

PATIENT
  Sex: Female
  Weight: 81 kg

DRUGS (5)
  1. COREG [Concomitant]
     Dosage: 12.5 MG, 2X/DAY
  2. ACETYLSALICYLIC ACID [Concomitant]
     Dosage: 81 MG, 1X/DAY
  3. PEPCID [Concomitant]
     Dosage: UNK, 2X/DAY
  4. PLAVIX [Concomitant]
     Dosage: 75 MG, 1X/DAY
  5. TIKOSYN [Suspect]
     Indication: ARRHYTHMIA
     Dosage: 0.25 MG, 2X/DAY
     Route: 048
     Dates: start: 20110921

REACTIONS (1)
  - GLAUCOMA [None]
